FAERS Safety Report 15552457 (Version 2)
Quarter: 2018Q4

REPORT INFORMATION
  Report Type: Spontaneous
  Country: JP (occurrence: JP)
  Receive Date: 20181025
  Receipt Date: 20181025
  Transmission Date: 20190205
  Serious: Yes (Other)
  Sender: FDA-Public Use
  Company Number: PHJP2018JP017903

PATIENT
  Age: 79 Year
  Sex: Male

DRUGS (3)
  1. CICLOSPORIN [Suspect]
     Active Substance: CYCLOSPORINE
     Indication: PUSTULAR PSORIASIS
     Dosage: UNK
     Route: 065
  2. PREDNISOLONE. [Concomitant]
     Active Substance: PREDNISOLONE
     Indication: PUSTULAR PSORIASIS
     Dosage: 100 MG
     Route: 048
  3. CELECOX [Concomitant]
     Active Substance: CELECOXIB
     Indication: BACK PAIN
     Dosage: UNK
     Route: 065

REACTIONS (7)
  - Pustular psoriasis [Unknown]
  - Periodontitis [Recovering/Resolving]
  - Stomatitis [Recovering/Resolving]
  - Spinal compression fracture [Unknown]
  - Dry mouth [Recovering/Resolving]
  - Eating disorder symptom [Recovering/Resolving]
  - Condition aggravated [Unknown]
